FAERS Safety Report 8168570 (Version 6)
Quarter: 2013Q1

REPORT INFORMATION
  Report Type: Spontaneous
  Country: US (occurrence: US)
  Receive Date: 20111004
  Receipt Date: 20130114
  Transmission Date: 20140127
  Serious: Yes (Hospitalization, Disabling, Other)
  Sender: FDA-Public Use
  Company Number: US-009507513-1109USA02800

PATIENT
  Sex: 0

DRUGS (6)
  1. FOSAMAX [Suspect]
     Indication: OSTEOPOROSIS
     Dosage: 70 MG, QW
     Route: 048
     Dates: start: 2002, end: 200405
  2. FOSAMAX [Suspect]
     Indication: OSTEOPENIA
     Dosage: 70 MG, QW
     Route: 048
     Dates: start: 20070601, end: 200906
  3. FOSAMAX [Suspect]
     Dosage: 35 MG, QW
     Route: 048
  4. FOSAMAX D [Suspect]
     Indication: OSTEOPENIA
     Dosage: 70 MG, QW
     Route: 048
     Dates: start: 200406, end: 200705
  5. TOPAMAX [Concomitant]
     Indication: MIGRAINE
     Dosage: 50 MG, HS
  6. FORTEO [Concomitant]
     Indication: OSTEOPOROSIS
     Dosage: 600 MICROGRAM, QD

REACTIONS (71)
  - Systemic lupus erythematosus [Unknown]
  - Musculoskeletal disorder [Unknown]
  - Femur fracture [Unknown]
  - Vertebral artery occlusion [Unknown]
  - Polymyalgia rheumatica [Unknown]
  - Hypoaesthesia [Not Recovered/Not Resolved]
  - Haemorrhage [Unknown]
  - Device failure [Unknown]
  - Anaemia [Unknown]
  - Red blood cell sedimentation rate increased [Unknown]
  - Hypoacusis [Recovering/Resolving]
  - Osteoarthritis [Unknown]
  - Low turnover osteopathy [Unknown]
  - Dental caries [Unknown]
  - Endodontic procedure [Unknown]
  - Herpes zoster [Unknown]
  - Infection [Unknown]
  - Hypertension [Unknown]
  - Hyperlipidaemia [Unknown]
  - Sleep apnoea syndrome [Unknown]
  - Carpal tunnel syndrome [Unknown]
  - Hypoglycaemia [Unknown]
  - Red blood cell sedimentation rate increased [Unknown]
  - Vestibular neuronitis [Unknown]
  - Body tinea [Unknown]
  - Cataract [Unknown]
  - Scoliosis [Unknown]
  - Limb asymmetry [Unknown]
  - Intermittent claudication [Unknown]
  - Bunion [Unknown]
  - Oedema [Unknown]
  - Varicose vein [Unknown]
  - Arthritis [Unknown]
  - Poor quality sleep [Unknown]
  - Back injury [Recovered/Resolved]
  - Radiculopathy [Unknown]
  - Sedation [Unknown]
  - Intervertebral disc degeneration [Unknown]
  - Cardiac murmur [Unknown]
  - Weight increased [Unknown]
  - Folliculitis [Unknown]
  - Troponin increased [Unknown]
  - Urosepsis [Unknown]
  - C-reactive protein increased [Unknown]
  - Foot fracture [Unknown]
  - Bone deformity [Unknown]
  - Bursitis [Unknown]
  - Depression [Unknown]
  - Restless legs syndrome [Unknown]
  - Gastroenteritis [Unknown]
  - Diverticulum [Unknown]
  - Haemorrhoids [Unknown]
  - Adjustment disorder [Unknown]
  - Fall [Unknown]
  - Anxiety [Unknown]
  - Irritable bowel syndrome [Unknown]
  - Musculoskeletal pain [Unknown]
  - Pain in extremity [Unknown]
  - Off label use [Unknown]
  - Vertigo [Unknown]
  - Back pain [Not Recovered/Not Resolved]
  - Mouth ulceration [Unknown]
  - Drug ineffective [Unknown]
  - Flatulence [Unknown]
  - Muscle spasms [Unknown]
  - Diarrhoea [Unknown]
  - Gastrooesophageal reflux disease [Unknown]
  - Fracture nonunion [Unknown]
  - Open reduction of fracture [Unknown]
  - Transfusion [Unknown]
  - Hypotension [Unknown]
